FAERS Safety Report 4699344-8 (Version None)
Quarter: 2005Q2

REPORT INFORMATION
  Report Type: 
  Country: None (occurrence: None)
  Receive Date: 20050622
  Receipt Date: 20050531
  Transmission Date: 20051028
  Serious: Yes (Death)
  Sender: FDA-Public Use
  Company Number: FABR-10657

PATIENT
  Age: 58 Year
  Sex: Male
  Weight: 67.7 kg

DRUGS (15)
  1. FABRAZYME [Suspect]
     Indication: FABRY'S DISEASE
     Dosage: 70 MG Q2WKS IV
     Route: 042
     Dates: start: 20031001, end: 20040624
  2. FABRAZYME [Suspect]
     Indication: FABRY'S DISEASE
     Dosage: 70 MG Q2WKS IV
     Route: 042
     Dates: start: 20021009, end: 20030501
  3. SODIUM BICARBONATE [Concomitant]
  4. NEORAL [Concomitant]
  5. SPIRONOLACTONE [Concomitant]
  6. BISOPROLOL [Concomitant]
  7. DIGOXIN [Concomitant]
  8. VALSARTAN [Concomitant]
  9. DIDRONEL [Concomitant]
  10. CALCITRIOL [Concomitant]
  11. THYROXIN [Concomitant]
  12. PREDNISOLONE [Concomitant]
  13. FRUSEMIDE [Concomitant]
  14. ALLOPURINOL [Concomitant]
  15. WARFARIN [Concomitant]

REACTIONS (23)
  - ANOREXIA [None]
  - ATRIAL FIBRILLATION [None]
  - BLOOD CREATINE INCREASED [None]
  - BLOOD POTASSIUM INCREASED [None]
  - BLOOD UREA INCREASED [None]
  - BLOOD URIC ACID INCREASED [None]
  - CARDIAC DEATH [None]
  - DEEP VEIN THROMBOSIS [None]
  - DIARRHOEA [None]
  - DYSPNOEA AT REST [None]
  - HAEMOGLOBIN DECREASED [None]
  - HEART RATE DECREASED [None]
  - HEPATOMEGALY [None]
  - HYPERTENSION [None]
  - HYPOTHYROIDISM [None]
  - MITRAL VALVE INCOMPETENCE [None]
  - MYOCARDIAL FIBROSIS [None]
  - PLATELET DISORDER [None]
  - PULMONARY EMBOLISM [None]
  - SKIN PAPILLOMA [None]
  - SPINAL COLUMN STENOSIS [None]
  - TRANSIENT ISCHAEMIC ATTACK [None]
  - WEIGHT DECREASED [None]
